FAERS Safety Report 10155062 (Version 1)
Quarter: 2014Q2

REPORT INFORMATION
  Report Type: Report from Study
  Country: BR (occurrence: BR)
  Receive Date: 20140506
  Receipt Date: 20140506
  Transmission Date: 20141212
  Serious: Yes (Hospitalization)
  Sender: FDA-Public Use
  Company Number: PHHY2014BR053212

PATIENT
  Age: 57 Year
  Sex: Female
  Weight: 63.9 kg

DRUGS (1)
  1. SANDOSTATIN LAR [Suspect]
     Indication: ACROMEGALY
     Dosage: 10 MG, EVERY 28 DAYS
     Dates: end: 20140127

REACTIONS (2)
  - Hormone level abnormal [Recovered/Resolved]
  - Headache [Not Recovered/Not Resolved]
